FAERS Safety Report 10668249 (Version 2)
Quarter: 2014Q4

REPORT INFORMATION
  Report Type: Spontaneous
  Country: US (occurrence: US)
  Receive Date: 20141222
  Receipt Date: 20141222
  Transmission Date: 20150529
  Serious: No
  Sender: FDA-Public Use
  Company Number: US-GLAXOSMITHKLINE-A1075685A

PATIENT

DRUGS (7)
  1. VITAMIN D [Concomitant]
     Active Substance: CHOLECALCIFEROL
  2. COZAAR [Concomitant]
     Active Substance: LOSARTAN POTASSIUM
  3. AVODART [Suspect]
     Active Substance: DUTASTERIDE
     Dates: start: 201306, end: 20140503
  4. AVODART [Suspect]
     Active Substance: DUTASTERIDE
     Dates: start: 201306, end: 20140503
  5. LOVAZA [Concomitant]
     Active Substance: OMEGA-3-ACID ETHYL ESTERS
  6. AVODART [Suspect]
     Active Substance: DUTASTERIDE
     Indication: PROSTATOMEGALY
     Route: 048
     Dates: start: 201306, end: 20140503
  7. LEVOTHYROXINE [Concomitant]
     Active Substance: LEVOTHYROXINE

REACTIONS (3)
  - Breast swelling [Recovering/Resolving]
  - Raynaud^s phenomenon [Recovering/Resolving]
  - Breast tenderness [Recovering/Resolving]

NARRATIVE: CASE EVENT DATE: 201404
